FAERS Safety Report 14636194 (Version 1)
Quarter: 2018Q1

REPORT INFORMATION
  Report Type: Not Available
  Country: US (occurrence: US)
  Receive Date: 20180314
  Receipt Date: 20180314
  Transmission Date: 20180509
  Serious: No
  Sender: FDA-Public Use
  Company Number: US-FOUNDATIONCONSUMERHC-2018-US-001279

PATIENT
  Age: 17 Year
  Sex: Female

DRUGS (2)
  1. UNSPECIFIED MEDICATION ^FOR THE HEART^ [Concomitant]
  2. PLAN B ONE-STEP [Suspect]
     Active Substance: LEVONORGESTREL
     Dosage: 1.5 MG TABLET X 1 DOSE
     Route: 048
     Dates: start: 20180121, end: 20180121

REACTIONS (1)
  - Vaginal discharge [Not Recovered/Not Resolved]

NARRATIVE: CASE EVENT DATE: 20180123
